FAERS Safety Report 5599616-9 (Version None)
Quarter: 2008Q1

REPORT INFORMATION
  Report Type: 
  Country: None (occurrence: None)
  Receive Date: 20080123
  Receipt Date: 20080116
  Transmission Date: 20080703
  Serious: Yes (Death)
  Sender: FDA-Public Use
  Company Number: JP-BAYER-200711052BYL

PATIENT
  Age: 77 Year
  Sex: Male
  Weight: 60 kg

DRUGS (15)
  1. FLUDARA [Suspect]
     Indication: B-CELL SMALL LYMPHOCYTIC LYMPHOMA
     Dosage: TOTAL DAILY DOSE: 50 MG  UNIT DOSE: 10 MG
     Route: 048
     Dates: start: 20071018, end: 20071022
  2. FLUDARA [Suspect]
     Dosage: TOTAL DAILY DOSE: 50 MG
     Route: 048
     Dates: start: 20071201, end: 20071205
  3. SALOBEL [Concomitant]
     Indication: PROPHYLAXIS
     Route: 048
     Dates: start: 20071017, end: 20071209
  4. MAGNESIUM OXIDE [Concomitant]
     Indication: CONSTIPATION
     Route: 048
     Dates: start: 20071015, end: 20071209
  5. BAKTAR [Concomitant]
     Indication: PROPHYLAXIS
     Dosage: TOTAL DAILY DOSE: 4 DF
     Route: 048
     Dates: start: 20071022, end: 20071206
  6. VOLTAREN [Concomitant]
     Indication: BACK PAIN
     Route: 062
     Dates: start: 20071023
  7. SOLDEM 1 [Concomitant]
     Indication: PROPHYLAXIS
     Route: 041
     Dates: start: 20071018, end: 20071019
  8. CRAVIT [Concomitant]
     Indication: UPPER RESPIRATORY TRACT INFLAMMATION
     Route: 048
     Dates: start: 20071106, end: 20071110
  9. MUCODYNE [Concomitant]
     Indication: UPPER RESPIRATORY TRACT INFLAMMATION
     Route: 048
     Dates: start: 20071106, end: 20071208
  10. LOPEMIN [Concomitant]
     Indication: DIARRHOEA
     Route: 048
  11. HUSTAZOL [Concomitant]
     Route: 048
     Dates: start: 20071115, end: 20071208
  12. KLARICID [Concomitant]
     Indication: BRONCHITIS CHRONIC
     Route: 048
     Dates: start: 20071115, end: 20071208
  13. LENDORMIN D [Concomitant]
     Indication: INSOMNIA
     Route: 048
     Dates: start: 20071115
  14. HARNAL D [Concomitant]
     Indication: BENIGN PROSTATIC HYPERPLASIA
     Route: 048
     Dates: end: 20071208
  15. BOSMIN [Concomitant]
     Route: 042
     Dates: start: 20071210, end: 20071210

REACTIONS (4)
  - ANOREXIA [None]
  - HYPERKALAEMIA [None]
  - NAUSEA [None]
  - TUMOUR LYSIS SYNDROME [None]
